FAERS Safety Report 5451276-3 (Version None)
Quarter: 2007Q3

REPORT INFORMATION
  Report Type: 
  Country: None (occurrence: None)
  Receive Date: 20070911
  Receipt Date: 20070911
  Transmission Date: 20080115
  Serious: Yes (Life-Threatening, Hospitalization)
  Sender: FDA-Public Use
  Company Number: None

PATIENT
  Age: 52 Year
  Sex: Female
  Weight: 74.8435 kg

DRUGS (1)
  1. ORTHO B COMPLEX 180 DIETARY SUPPLEMENT ORTHO MOLECULAR PRODUCTS, INC [Suspect]
     Indication: VITAMIN A
     Dosage: 1 1 BUCCAL ONCE
     Route: 002
     Dates: start: 20070903, end: 20070903

REACTIONS (7)
  - GAIT DISTURBANCE [None]
  - HEADACHE [None]
  - HYPOAESTHESIA [None]
  - HYPOTONIA [None]
  - PARAESTHESIA [None]
  - PERIPHERAL SENSORY NEUROPATHY [None]
  - RESPIRATORY DISTRESS [None]
